FAERS Safety Report 4274649-3 (Version None)
Quarter: 2004Q1

REPORT INFORMATION
  Report Type: 
  Country: None (occurrence: None)
  Receive Date: 20040120
  Receipt Date: 20031112
  Transmission Date: 20041129
  Serious: Yes (Hospitalization, Other)
  Sender: FDA-Public Use
  Company Number: PHHO2003NO14423

PATIENT
  Age: 52 Year
  Sex: Female
  Weight: 73 kg

DRUGS (3)
  1. FTY720 VS MYCOPHENOLATE MOFETIL [Suspect]
     Indication: RENAL TRANSPLANT
     Dosage: CODE NOT BROKEN
     Route: 048
  2. PREDNISOLONE [Suspect]
     Indication: RENAL TRANSPLANT
     Dosage: 10 MG, BID
     Route: 048
     Dates: start: 20031015
  3. NEORAL [Suspect]
     Indication: RENAL TRANSPLANT
     Dosage: 225 MG, BID
     Route: 048
     Dates: start: 20031016

REACTIONS (6)
  - BLOOD CREATININE INCREASED [None]
  - HYDRONEPHROSIS [None]
  - IMPAIRED HEALING [None]
  - LAPAROSCOPIC SURGERY [None]
  - LYMPHOCELE [None]
  - POST PROCEDURAL COMPLICATION [None]
